FAERS Safety Report 6403232-6 (Version None)
Quarter: 2009Q4

REPORT INFORMATION
  Report Type: 
  Country: None (occurrence: None)
  Receive Date: 20091015
  Receipt Date: 20091015
  Transmission Date: 20100525
  Serious: No
  Sender: FDA-Public Use
  Company Number: None

PATIENT
  Age: 57 Year
  Sex: Female
  Weight: 62.5964 kg

DRUGS (1)
  1. AUGMENTIN '500' [Suspect]
     Indication: TOOTH INFECTION
     Dosage: 500 MG T.I.D. P.O.
     Route: 048
     Dates: start: 20091001

REACTIONS (3)
  - FATIGUE [None]
  - GASTROINTESTINAL DISORDER [None]
  - GASTROINTESTINAL PAIN [None]
